FAERS Safety Report 11553228 (Version 1)
Quarter: 2015Q3

REPORT INFORMATION
  Report Type: Report from Study
  Country: CO (occurrence: CO)
  Receive Date: 20150925
  Receipt Date: 20150925
  Transmission Date: 20151125
  Serious: Yes (Death)
  Sender: FDA-Public Use
  Company Number: CO-ACTELION-A-CH2015-123218

PATIENT
  Age: 22 Year
  Sex: Female

DRUGS (6)
  1. TRACLEER [Suspect]
     Active Substance: BOSENTAN
     Indication: PULMONARY ARTERIAL HYPERTENSION
     Dosage: 62.5 MG, OD
     Route: 048
     Dates: start: 20150709, end: 20150719
  2. FUROSEMID [Concomitant]
     Active Substance: FUROSEMIDE
     Dosage: 40 MG, OD
  3. ASA [Concomitant]
     Active Substance: ASPIRIN
     Dosage: 100 MG, OD
  4. METHYL-DIGOXIN [Concomitant]
     Dosage: 14 DROP, OD
  5. SILDENAFIL. [Concomitant]
     Active Substance: SILDENAFIL
     Dosage: 50 MG, OD
  6. CAPTOPRIL. [Concomitant]
     Active Substance: CAPTOPRIL
     Dosage: 25 MG, OD

REACTIONS (2)
  - Respiratory distress [Fatal]
  - Cough [Fatal]

NARRATIVE: CASE EVENT DATE: 20150719
